FAERS Safety Report 18967565 (Version 4)
Quarter: 2023Q4

REPORT INFORMATION
  Report Type: Spontaneous
  Country: US (occurrence: US)
  Receive Date: 20210304
  Receipt Date: 20231011
  Transmission Date: 20240109
  Serious: Yes (Other)
  Sender: FDA-Public Use
  Company Number: US-SA-SAC20210303001517

PATIENT
  Age: 20 Year
  Sex: Female

DRUGS (7)
  1. DUPIXENT [Suspect]
     Active Substance: DUPILUMAB
     Indication: Dermatitis atopic
     Dosage: 300 MG, QOW
     Route: 058
     Dates: start: 20190522
  2. EUCRISA [Concomitant]
     Active Substance: CRISABOROLE
  3. VITAMIN C [Concomitant]
     Active Substance: ASCORBIC ACID
  4. OPZELURA [Concomitant]
     Active Substance: RUXOLITINIB PHOSPHATE
  5. MODERNA COVID-19 VACCINE [Concomitant]
     Active Substance: ELASOMERAN
     Indication: Immunisation
  6. HYDROCORTISONE [Concomitant]
     Active Substance: HYDROCORTISONE
  7. RESTASIS [Concomitant]
     Active Substance: CYCLOSPORINE

REACTIONS (11)
  - Blindness [Not Recovered/Not Resolved]
  - Eye disorder [Not Recovered/Not Resolved]
  - Eye pain [Not Recovered/Not Resolved]
  - Dry eye [Not Recovered/Not Resolved]
  - Eye discharge [Not Recovered/Not Resolved]
  - Lacrimation increased [Unknown]
  - Eye inflammation [Unknown]
  - Ocular hyperaemia [Not Recovered/Not Resolved]
  - Fatigue [Not Recovered/Not Resolved]
  - Epistaxis [Unknown]
  - Ophthalmic migraine [Unknown]
